FAERS Safety Report 10866465 (Version 1)
Quarter: 2015Q1

REPORT INFORMATION
  Report Type: Spontaneous
  Country: US (occurrence: None)
  Receive Date: 20150219
  Receipt Date: 20150219
  Transmission Date: 20150721
  Serious: Yes (Hospitalization)
  Sender: FDA-Public Use
  Company Number: None

PATIENT
  Age: 36 Year
  Sex: Female

DRUGS (1)
  1. PARAGARD T 380A [Suspect]
     Active Substance: COPPER
     Indication: CONTRACEPTION
     Dosage: 1 IUD; 10 YEARS
     Route: 015

REACTIONS (3)
  - Sepsis [None]
  - Pelvic abscess [None]
  - Uterine perforation [None]

NARRATIVE: CASE EVENT DATE: 20150215
